FAERS Safety Report 6958247-6 (Version None)
Quarter: 2010Q3

REPORT INFORMATION
  Report Type: 
  Country: None (occurrence: None)
  Receive Date: 20100831
  Receipt Date: 20100823
  Transmission Date: 20110219
  Serious: Yes (Other)
  Sender: FDA-Public Use
  Company Number: CO-JNJFOC-20100808088

PATIENT
  Age: 35 Year
  Sex: Female

DRUGS (10)
  1. REMICADE [Suspect]
     Indication: RHEUMATOID ARTHRITIS
     Route: 042
  2. REMICADE [Suspect]
     Route: 042
  3. CALCIUM [Concomitant]
  4. METHOTREXATE [Concomitant]
  5. OMEPRAZOLE [Concomitant]
  6. FOLIC ACID [Concomitant]
  7. CHLOROQUINE PHOSPHATE [Concomitant]
  8. PREDNISOLONE [Concomitant]
  9. HYDROCORTISONE [Concomitant]
     Indication: PREMEDICATION
  10. ACETAMINOPHEN [Concomitant]
     Indication: PREMEDICATION

REACTIONS (4)
  - ERYTHEMA [None]
  - HYPERTENSION [None]
  - INFUSION RELATED REACTION [None]
  - VOMITING [None]
